FAERS Safety Report 7860840-3 (Version None)
Quarter: 2011Q4

REPORT INFORMATION
  Report Type: 
  Country: None (occurrence: None)
  Receive Date: 20111027
  Receipt Date: 20111012
  Transmission Date: 20120403
  Serious: Yes (Hospitalization)
  Sender: FDA-Public Use
  Company Number: US-BAYER-2011-050592

PATIENT
  Age: 46 Year
  Sex: Female
  Weight: 83.9 kg

DRUGS (8)
  1. YASMIN [Suspect]
     Indication: MENSTRUATION IRREGULAR
  2. BACTRIM DS [Concomitant]
     Dosage: UNK UNK, BID
     Route: 048
  3. MAGNESIUM HYDROXIDE TAB [Concomitant]
  4. PROMETHAZINE [Concomitant]
     Dosage: 25 MG, UNK
  5. CALCIUM CARBONATE [Concomitant]
  6. WELLBUTRIN XL [Concomitant]
     Indication: DEPRESSION
     Dosage: 150 MG, QD
  7. DROSPIRENONE AND ETHINYL ESTRADIOL [Suspect]
     Indication: MENSTRUATION IRREGULAR
  8. TOPROL-XL [Concomitant]
     Indication: BLOOD PRESSURE ABNORMAL
     Dosage: 25 MG, QD
     Dates: start: 20040101

REACTIONS (3)
  - CHOLECYSTITIS CHRONIC [None]
  - PAIN [None]
  - GALLBLADDER DISORDER [None]
